FAERS Safety Report 6680821-5 (Version None)
Quarter: 2010Q2

REPORT INFORMATION
  Report Type: 
  Country: None (occurrence: None)
  Receive Date: 20100412
  Receipt Date: 20100330
  Transmission Date: 20101027
  Serious: Yes (Other)
  Sender: FDA-Public Use
  Company Number: JP-SOLVAY-00309007810

PATIENT
  Age: 43 Year
  Sex: Male

DRUGS (5)
  1. LUVOX [Suspect]
     Indication: DEPRESSION
     Dosage: 50 MILLIGRAM(S)
     Route: 048
     Dates: start: 20091107, end: 20091125
  2. DOGMATYL (SULPIRIDE) [Concomitant]
  3. DIAZEPAM [Concomitant]
  4. DEPAS (ETIZOLAM) [Concomitant]
  5. DEPAKENE [Concomitant]

REACTIONS (2)
  - AGGRESSION [None]
  - HOMICIDAL IDEATION [None]
